FAERS Safety Report 5671425-1 (Version None)
Quarter: 2008Q1

REPORT INFORMATION
  Report Type: 
  Country: None (occurrence: None)
  Receive Date: 20080312
  Receipt Date: 20080303
  Transmission Date: 20080703
  Serious: Yes (Hospitalization, Other)
  Sender: FDA-Public Use
  Company Number: US-WYE-H02905008

PATIENT
  Age: 41 Year
  Sex: Female

DRUGS (1)
  1. CALTRATE 600 PLUS CHEWABLE [Suspect]
     Indication: NUTRITIONAL SUPPORT
     Dosage: 1 TABLET 1X 1 PER DAY, ORAL
     Route: 048
     Dates: start: 20070801, end: 20071101

REACTIONS (1)
  - NEPHROLITHIASIS [None]
